FAERS Safety Report 17840454 (Version 2)
Quarter: 2020Q3

REPORT INFORMATION
  Report Type: Spontaneous
  Country: IE (occurrence: IE)
  Receive Date: 20200529
  Receipt Date: 20200921
  Transmission Date: 20201103
  Serious: Yes (Hospitalization)
  Sender: FDA-Public Use
  Company Number: IE-MYLANLABS-2020M1052617

PATIENT
  Age: 26 Year
  Sex: Female

DRUGS (4)
  1. EPILIM [Concomitant]
     Active Substance: VALPROATE SODIUM
     Indication: SCHIZOAFFECTIVE DISORDER
     Dosage: 1300 MILLIGRAM, NOCTE
  2. CLOZARIL [Suspect]
     Active Substance: CLOZAPINE
     Dosage: 300 MILLIGRAM, NOCTE
     Dates: start: 2012, end: 20200702
  3. CLOZARIL [Suspect]
     Active Substance: CLOZAPINE
     Indication: SCHIZOPHRENIA
     Dosage: UNK
     Route: 048
     Dates: start: 20170112
  4. CLOZARIL [Suspect]
     Active Substance: CLOZAPINE
     Dosage: 5 MILLIGRAM, MANE
     Dates: start: 2012, end: 20200702

REACTIONS (2)
  - Surgery [Unknown]
  - Hospitalisation [Unknown]

NARRATIVE: CASE EVENT DATE: 202005
